FAERS Safety Report 14199545 (Version 1)
Quarter: 2017Q4

REPORT INFORMATION
  Report Type: Report from Study
  Country: CA (occurrence: CA)
  Receive Date: 20171117
  Receipt Date: 20171117
  Transmission Date: 20180321
  Serious: Yes (Other)
  Sender: FDA-Public Use
  Company Number: CA-GLAXOSMITHKLINE-CA2016GSK098652

PATIENT
  Age: 42 Year
  Sex: Female

DRUGS (12)
  1. CIMZIA [Concomitant]
     Active Substance: CERTOLIZUMAB PEGOL
  2. REMICADE [Concomitant]
     Active Substance: INFLIXIMAB
  3. COSENTYX [Suspect]
     Active Substance: SECUKINUMAB
     Indication: ANKYLOSING SPONDYLITIS
     Dosage: 150 MG, QMO
     Route: 058
     Dates: start: 20160627
  4. DICLOFENAC [Suspect]
     Active Substance: DICLOFENAC
     Indication: PRODUCT USED FOR UNKNOWN INDICATION
     Dosage: 150 UNK, UNK
     Route: 058
  5. SIMPONI [Concomitant]
     Active Substance: GOLIMUMAB
  6. COSENTYX [Suspect]
     Active Substance: SECUKINUMAB
     Dosage: 150 MG, QMO
     Route: 058
     Dates: start: 2017, end: 2017
  7. PLAQUENIL [Concomitant]
     Active Substance: HYDROXYCHLOROQUINE SULFATE
  8. ENBREL [Concomitant]
     Active Substance: ETANERCEPT
  9. COSENTYX [Suspect]
     Active Substance: SECUKINUMAB
     Dosage: 150 MG,QMO
     Route: 058
     Dates: start: 201609
  10. HUMIRA [Concomitant]
     Active Substance: ADALIMUMAB
  11. NAPROXEN. [Concomitant]
     Active Substance: NAPROXEN
  12. METHOTREXATE. [Concomitant]
     Active Substance: METHOTREXATE

REACTIONS (6)
  - Irritable bowel syndrome [Unknown]
  - Inappropriate schedule of drug administration [Unknown]
  - Uterine leiomyoma [Unknown]
  - Nausea [Unknown]
  - Colitis ulcerative [Unknown]
  - Musculoskeletal stiffness [Unknown]

NARRATIVE: CASE EVENT DATE: 201606
